FAERS Safety Report 5225149-5 (Version None)
Quarter: 2007Q1

REPORT INFORMATION
  Report Type: 
  Country: None (occurrence: None)
  Receive Date: 20070126
  Receipt Date: 20070117
  Transmission Date: 20070707
  Serious: Yes (Other)
  Sender: FDA-Public Use
  Company Number: 2006BI018525

PATIENT
  Age: 36 Year
  Sex: Female
  Weight: 48.0813 kg

DRUGS (1)
  1. NATALIZUMAB [Suspect]
     Indication: MULTIPLE SCLEROSIS
     Dosage: 300 MG; QM; IV
     Route: 042
     Dates: start: 20060901

REACTIONS (14)
  - AMNESIA [None]
  - BLOOD PRESSURE DECREASED [None]
  - BUNDLE BRANCH BLOCK [None]
  - CONFUSIONAL STATE [None]
  - FEELING HOT [None]
  - HEADACHE [None]
  - HEART RATE DECREASED [None]
  - HEART RATE INCREASED [None]
  - HYPERHIDROSIS [None]
  - INCOHERENT [None]
  - LOSS OF CONSCIOUSNESS [None]
  - NAUSEA [None]
  - NERVOUSNESS [None]
  - SYNCOPE [None]
